FAERS Safety Report 7270211-9 (Version None)
Quarter: 2011Q1

REPORT INFORMATION
  Report Type: 
  Country: None (occurrence: None)
  Receive Date: 20110125
  Receipt Date: 20110125
  Transmission Date: 20110831
  Serious: Yes (Hospitalization)
  Sender: FDA-Public Use
  Company Number: None

PATIENT
  Age: 90 Year
  Sex: Male
  Weight: 80.7403 kg

DRUGS (1)
  1. AMIODARONE HCL [Suspect]
     Indication: DRUG THERAPY CHANGED
     Dosage: 200 MG 1 X DA PO
     Route: 048
     Dates: start: 20100720, end: 20110108

REACTIONS (12)
  - DEVICE MALFUNCTION [None]
  - HYPOAESTHESIA [None]
  - CARDIAC DISORDER [None]
  - DECREASED APPETITE [None]
  - ALOPECIA [None]
  - LUNG DISORDER [None]
  - ASTHENIA [None]
  - TOXICITY TO VARIOUS AGENTS [None]
  - DECREASED INTEREST [None]
  - PULMONARY CONGESTION [None]
  - COUGH [None]
  - PAIN [None]
